FAERS Safety Report 7443891-2 (Version None)
Quarter: 2011Q2

REPORT INFORMATION
  Report Type: 
  Country: None (occurrence: None)
  Receive Date: 20110428
  Receipt Date: 20110311
  Transmission Date: 20111010
  Serious: Yes (Death, Other)
  Sender: FDA-Public Use
  Company Number: US-BAYER-201027604NA

PATIENT
  Age: 61 Year
  Sex: Male
  Weight: 78.636 kg

DRUGS (14)
  1. PHOSLO [Concomitant]
  2. OMNISCAN [Suspect]
     Indication: NUCLEAR MAGNETIC RESONANCE IMAGING
     Dosage: 60 ML OF GADOLINIUM AND APPROXIMATELY 3 ML OF IODINATED CONTRAST
     Route: 042
     Dates: start: 20041105, end: 20041105
  3. CLONIDINE [Concomitant]
  4. EPOETIN ALFA [Concomitant]
  5. NEPHRO-VITE [VITAMINS NOS] [Concomitant]
  6. ENALAPRIL [Concomitant]
  7. MAGNEVIST [Suspect]
     Indication: NUCLEAR MAGNETIC RESONANCE IMAGING BRAIN
     Dosage: 17 ML, ONCE
     Route: 042
     Dates: start: 20070207, end: 20070207
  8. OMNISCAN [Suspect]
     Indication: ARTERIOGRAM RENAL
     Route: 042
     Dates: start: 20041104, end: 20041104
  9. INSULIN [Concomitant]
  10. AMARYL [Concomitant]
  11. ASPIRIN [Concomitant]
  12. MAGNEVIST [Suspect]
     Indication: ANGIOGRAM
     Route: 042
     Dates: start: 20070210, end: 20070210
  13. OMNISCAN [Suspect]
     Indication: ANGIOGRAM
  14. MINOXIDIL [Concomitant]

REACTIONS (16)
  - SCAB [None]
  - GAIT DISTURBANCE [None]
  - SKIN EXFOLIATION [None]
  - OEDEMA PERIPHERAL [None]
  - SKIN ULCER [None]
  - SKIN HYPERTROPHY [None]
  - SKIN TIGHTNESS [None]
  - DRY SKIN [None]
  - JOINT RANGE OF MOTION DECREASED [None]
  - RASH [None]
  - SKIN FIBROSIS [None]
  - NEPHROGENIC SYSTEMIC FIBROSIS [None]
  - SKIN HYPERPIGMENTATION [None]
  - PAIN IN EXTREMITY [None]
  - NODULE [None]
  - MOBILITY DECREASED [None]
